FAERS Safety Report 5588705-0 (Version None)
Quarter: 2008Q1

REPORT INFORMATION
  Report Type: 
  Country: None (occurrence: None)
  Receive Date: 20080111
  Receipt Date: 20080103
  Transmission Date: 20080703
  Serious: Yes (Other)
  Sender: FDA-Public Use
  Company Number: B0359666A

PATIENT
  Age: 24 Year
  Sex: Female

DRUGS (5)
  1. SEROXAT [Suspect]
     Route: 065
     Dates: start: 20020926, end: 20031001
  2. CIPRAMIL [Concomitant]
     Dates: start: 20031021
  3. PROZAC [Concomitant]
     Dates: start: 20031219
  4. DIAZEPAM [Concomitant]
     Dates: start: 20030901
  5. EFFEXOR [Concomitant]
     Dates: start: 20031121

REACTIONS (18)
  - AGITATION [None]
  - CONFUSIONAL STATE [None]
  - DISTURBANCE IN ATTENTION [None]
  - DIZZINESS [None]
  - DRUG WITHDRAWAL SYNDROME [None]
  - FATIGUE [None]
  - HALLUCINATION [None]
  - HYPERHIDROSIS [None]
  - INFLUENZA [None]
  - INTENTIONAL SELF-INJURY [None]
  - LETHARGY [None]
  - MEMORY IMPAIRMENT [None]
  - NIGHTMARE [None]
  - PARAESTHESIA [None]
  - SUICIDAL IDEATION [None]
  - SUICIDE ATTEMPT [None]
  - TREMOR [None]
  - VERTIGO [None]
